FAERS Safety Report 11822540 (Version 3)
Quarter: 2016Q4

REPORT INFORMATION
  Report Type: Spontaneous
  Country: US (occurrence: US)
  Receive Date: 20151210
  Receipt Date: 20161121
  Transmission Date: 20170206
  Serious: Yes (Death, Hospitalization, Other)
  Sender: FDA-Public Use
  Company Number: US-GLAXOSMITHKLINE-US2015174097

PATIENT
  Age: 63 Year
  Sex: Male

DRUGS (12)
  1. VENTOLIN HFA [Suspect]
     Active Substance: ALBUTEROL SULFATE
     Indication: EMPHYSEMA
     Dosage: 2 PUFF(S), PRN
     Route: 055
  2. ADVAIR DISKUS [Suspect]
     Active Substance: FLUTICASONE PROPIONATE\SALMETEROL XINAFOATE
     Indication: EMPHYSEMA
     Dosage: 1 PUFF(S), U
     Route: 055
  3. ADVAIR DISKUS [Suspect]
     Active Substance: FLUTICASONE PROPIONATE\SALMETEROL XINAFOATE
     Indication: BRONCHITIS
  4. FUROSEMIDE. [Concomitant]
     Active Substance: FUROSEMIDE
  5. LISINOPRIL. [Concomitant]
     Active Substance: LISINOPRIL
  6. CARVEDILOL. [Concomitant]
     Active Substance: CARVEDILOL
  7. ELIQUIS [Concomitant]
     Active Substance: APIXABAN
  8. LIPITOR [Concomitant]
     Active Substance: ATORVASTATIN CALCIUM
  9. SYNTHROID [Concomitant]
     Active Substance: LEVOTHYROXINE SODIUM
  10. VENTOLIN HFA [Suspect]
     Active Substance: ALBUTEROL SULFATE
     Indication: BRONCHITIS
  11. ALPRAZOLAM. [Concomitant]
     Active Substance: ALPRAZOLAM
  12. AMIODARONE [Concomitant]
     Active Substance: AMIODARONE

REACTIONS (3)
  - Death [Fatal]
  - Cardiac ablation [Recovered/Resolved with Sequelae]
  - Arrhythmia [Recovering/Resolving]

NARRATIVE: CASE EVENT DATE: 201503
